FAERS Safety Report 11967548 (Version 1)
Quarter: 2016Q1

REPORT INFORMATION
  Report Type: Report from Study
  Country: IT (occurrence: IT)
  Receive Date: 20160127
  Receipt Date: 20160127
  Transmission Date: 20160526
  Serious: Yes (Other)
  Sender: FDA-Public Use
  Company Number: IT-BAXTER-2016BAX003410

PATIENT
  Age: 82 Year
  Sex: Male

DRUGS (3)
  1. ENDOXAN BAXTER [Suspect]
     Active Substance: CYCLOPHOSPHAMIDE
     Indication: TRANSITIONAL CELL CARCINOMA METASTATIC
     Route: 048
  2. QUERCETIN [Concomitant]
     Active Substance: QUERCETIN
     Indication: TRANSITIONAL CELL CARCINOMA
     Route: 065
  3. PACLITAXEL. [Concomitant]
     Active Substance: PACLITAXEL
     Indication: TRANSITIONAL CELL CARCINOMA
     Route: 065

REACTIONS (1)
  - Disease progression [Recovered/Resolved]
